FAERS Safety Report 16301167 (Version 7)
Quarter: 2019Q3

REPORT INFORMATION
  Report Type: Report from Study
  Country: US (occurrence: US)
  Receive Date: 20190510
  Receipt Date: 20190919
  Transmission Date: 20191004
  Serious: Yes (Hospitalization)
  Sender: FDA-Public Use
  Company Number: US-ACTELION-A-NJ2019-190112

PATIENT
  Age: 41 Year
  Sex: Female
  Weight: 120.64 kg

DRUGS (9)
  1. VELETRI [Suspect]
     Active Substance: EPOPROSTENOL
     Dosage: 5.2 NG/KG, PER MIN
     Route: 042
  2. FUROSEMIDE. [Concomitant]
     Active Substance: FUROSEMIDE
  3. VELETRI [Suspect]
     Active Substance: EPOPROSTENOL
     Indication: PULMONARY ARTERIAL HYPERTENSION
     Dosage: 7.1 NG/KG, PER MIN
     Route: 042
  4. VELETRI [Suspect]
     Active Substance: EPOPROSTENOL
     Dosage: 6.4 NG/KG, PER MIN
     Route: 042
  5. ADEMPAS [Concomitant]
     Active Substance: RIOCIGUAT
  6. TYVASO [Concomitant]
     Active Substance: TREPROSTINIL
  7. VELETRI [Suspect]
     Active Substance: EPOPROSTENOL
     Dosage: 6.94 NG
     Route: 042
  8. VELETRI [Suspect]
     Active Substance: EPOPROSTENOL
     Dosage: 6.5 NG/KG, PER MIN
     Route: 042
  9. OPSUMIT [Suspect]
     Active Substance: MACITENTAN
     Indication: PULMONARY ARTERIAL HYPERTENSION
     Dosage: 10 MG, QD
     Route: 048

REACTIONS (26)
  - Catheter site rash [Recovering/Resolving]
  - Constipation [Unknown]
  - Nausea [Unknown]
  - Abdominal discomfort [Unknown]
  - Fluid retention [Unknown]
  - Photophobia [Unknown]
  - Abdominal distension [Unknown]
  - Therapy change [Unknown]
  - Pain in jaw [Unknown]
  - Abdominal pain upper [Unknown]
  - Orthostatic hypotension [Unknown]
  - Unevaluable event [Unknown]
  - Decreased appetite [Unknown]
  - Device breakage [Unknown]
  - Vomiting [Unknown]
  - Dyspepsia [Unknown]
  - Migraine [Unknown]
  - Anxiety [Unknown]
  - Diarrhoea [Unknown]
  - Catheter site erythema [Unknown]
  - Catheter site related reaction [Unknown]
  - Headache [Unknown]
  - Dyspnoea [Unknown]
  - Flushing [Unknown]
  - Palpitations [Not Recovered/Not Resolved]
  - Fatigue [Unknown]

NARRATIVE: CASE EVENT DATE: 20190826
